FAERS Safety Report 8634672 (Version 3)
Quarter: 2013Q4

REPORT INFORMATION
  Report Type: Spontaneous
  Country: US (occurrence: US)
  Receive Date: 20120626
  Receipt Date: 20131007
  Transmission Date: 20140711
  Serious: Yes (Hospitalization)
  Sender: FDA-Public Use
  Company Number: US-BAYER-2012-061959

PATIENT
  Age: 23 Year
  Sex: Female
  Weight: 72.56 kg

DRUGS (13)
  1. YAZ [Suspect]
     Indication: ACNE
     Dosage: UNK
     Dates: start: 201102, end: 201105
  2. YAZ [Suspect]
     Indication: CONTRACEPTION
  3. GIANVI [Suspect]
  4. SEPTRA [Concomitant]
     Dosage: UNK
     Route: 048
     Dates: start: 20110108
  5. SOLU-MEDROL [Concomitant]
     Dosage: 125 MG, UNK
     Route: 042
     Dates: start: 20110118
  6. BENADRYL [Concomitant]
     Dosage: 50 MG, UNK
     Route: 042
     Dates: start: 20110118
  7. BENADRYL [Concomitant]
     Dosage: 25 MG, UNK
     Route: 048
     Dates: start: 20110118
  8. ZANTAC [Concomitant]
     Dosage: 50 MG, UNK
     Route: 042
     Dates: start: 20110118
  9. ZANTAC [Concomitant]
     Dosage: 150 MG, UNK
     Route: 048
     Dates: start: 20110118
  10. PREDNISONE [Concomitant]
     Dosage: TAPER
     Route: 048
     Dates: start: 20110118
  11. TORADOL [Concomitant]
     Indication: CHEST PAIN
  12. NORCO [Concomitant]
  13. NICOTINE [Concomitant]

REACTIONS (4)
  - Injury [None]
  - Pulmonary embolism [None]
  - Pulmonary infarction [None]
  - Pain [None]
